FAERS Safety Report 17276610 (Version 1)
Quarter: 2020Q1

REPORT INFORMATION
  Report Type: Spontaneous
  Country: FR (occurrence: FR)
  Receive Date: 20200116
  Receipt Date: 20200116
  Transmission Date: 20200409
  Serious: Yes (Other)
  Sender: FDA-Public Use
  Company Number: NVSC2020FR007231

PATIENT
  Age: 86 Year
  Sex: Male
  Weight: 75 kg

DRUGS (1)
  1. LEVOFLOXACIN. [Suspect]
     Active Substance: LEVOFLOXACIN
     Indication: PROSTATITIS
     Dosage: 500 MG, QD
     Route: 048
     Dates: start: 20180416, end: 20180418

REACTIONS (3)
  - Bundle branch block right [Unknown]
  - Bundle branch block left [Unknown]
  - Electrocardiogram QT prolonged [Unknown]
